FAERS Safety Report 7544059-1 (Version None)
Quarter: 2011Q2

REPORT INFORMATION
  Report Type: 
  Country: None (occurrence: None)
  Receive Date: 20110613
  Receipt Date: 20051010
  Transmission Date: 20111010
  Serious: Yes (Death)
  Sender: FDA-Public Use
  Company Number: PHHO2005BR16009

PATIENT
  Age: 45 Year
  Sex: Male

DRUGS (2)
  1. DIOVAN HCT [Suspect]
     Indication: HYPERTENSION
     Dosage: 160/12.5 MG DAILY
  2. INSULIN [Concomitant]

REACTIONS (2)
  - CARDIAC ARREST [None]
  - DIABETIC HYPEROSMOLAR COMA [None]
